FAERS Safety Report 8356049-X (Version None)
Quarter: 2012Q2

REPORT INFORMATION
  Report Type: 
  Country: None (occurrence: None)
  Receive Date: 20120514
  Receipt Date: 20120508
  Transmission Date: 20120825
  Serious: Yes (Hospitalization, Disabling)
  Sender: FDA-Public Use
  Company Number: US-BAYER-2011-009638

PATIENT
  Age: 40 Year
  Sex: Female
  Weight: 73.016 kg

DRUGS (9)
  1. CEPHALEXIN [Concomitant]
     Indication: URINARY TRACT INFECTION
     Dosage: 500 MG, DAILY
     Dates: start: 20090123, end: 20090206
  2. ALPRAZOLAM [Concomitant]
  3. NABUMETONE [Concomitant]
     Indication: ANALGESIC THERAPY
     Dosage: 750 MG, DAILY
     Dates: start: 20090123, end: 20090206
  4. PHENAZOPYRIDINE HCL TAB [Concomitant]
     Indication: URINARY TRACT INFECTION
     Dosage: 200 MG, DAILY
     Dates: start: 20090123, end: 20090206
  5. ADIPEX-P [Concomitant]
     Indication: WEIGHT DECREASED
     Dosage: 37.5 MG, DAILY
     Dates: start: 20090123
  6. YAZ [Suspect]
     Indication: CONTRACEPTION
     Dosage: UNK
     Dates: start: 20080101, end: 20090101
  7. PROPOXYPHENE HYDROCHLORIDE [Concomitant]
  8. AMBIEN [Concomitant]
  9. METHYLPREDNISOLONE [Concomitant]
     Indication: INFLAMMATION
     Dosage: 4 MG, DAILY
     Dates: start: 20090123, end: 20090206

REACTIONS (8)
  - EMBOLIC STROKE [None]
  - FEAR [None]
  - ANXIETY [None]
  - PAIN [None]
  - PSYCHOLOGICAL TRAUMA [None]
  - CEREBROVASCULAR ACCIDENT [None]
  - EMOTIONAL DISTRESS [None]
  - CEREBRAL INFARCTION [None]
